FAERS Safety Report 5590889-5 (Version None)
Quarter: 2007Q4

REPORT INFORMATION
  Report Type: 
  Country: None (occurrence: None)
  Receive Date: 20071212
  Receipt Date: 20070709
  Transmission Date: 20080405
  Serious: Yes (Death)
  Sender: FDA-Public Use
  Company Number: USA-2007-0026406

PATIENT
  Age: 36 Year
  Sex: Male
  Weight: 98.4 kg

DRUGS (11)
  1. OXYCONTIN [Suspect]
     Indication: PAIN
     Dosage: 40 MG, Q8H
  2. CAFFEINE CITRATE [Suspect]
     Indication: DRUG USE FOR UNKNOWN INDICATION
  3. ACETAMINOPHEN [Suspect]
     Indication: DRUG USE FOR UNKNOWN INDICATION
  4. MEPROBAMATE [Suspect]
     Indication: DRUG USE FOR UNKNOWN INDICATION
  5. CARISOPRODOL [Suspect]
     Indication: DRUG USE FOR UNKNOWN INDICATION
  6. GABAPENTIN [Suspect]
     Indication: DRUG USE FOR UNKNOWN INDICATION
  7. DIPHENHYDRAMINE HCL [Suspect]
     Indication: DRUG USE FOR UNKNOWN INDICATION
  8. VENLAFAXINE HCL [Suspect]
     Indication: DRUG USE FOR UNKNOWN INDICATION
  9. CARBAMAZEPINE [Suspect]
     Indication: DRUG USE FOR UNKNOWN INDICATION
  10. OXCARBAZEPINE [Suspect]
     Indication: DRUG USE FOR UNKNOWN INDICATION
  11. OXYMORPHONE (OXYMORPHONE) [Suspect]
     Indication: DRUG USE FOR UNKNOWN INDICATION

REACTIONS (2)
  - INTENTIONAL OVERDOSE [None]
  - ROAD TRAFFIC ACCIDENT [None]
